FAERS Safety Report 10081558 (Version 1)
Quarter: 2014Q2

REPORT INFORMATION
  Report Type: Spontaneous
  Country: TR (occurrence: TR)
  Receive Date: 20140416
  Receipt Date: 20140416
  Transmission Date: 20141212
  Serious: Yes (Hospitalization)
  Sender: FDA-Public Use
  Company Number: TR-009507513-1404TUR007652

PATIENT
  Age: 20 Year
  Sex: Female

DRUGS (2)
  1. PEGINTERFERON ALFA-2B [Suspect]
     Indication: HEPATITIS C
     Dosage: 100 MICROGRAM, QW
  2. RIBAVIRIN [Suspect]
     Indication: HEPATITIS C
     Dosage: 1000 MG, QD
     Route: 048

REACTIONS (3)
  - Secondary adrenocortical insufficiency [Recovered/Resolved]
  - Hyponatraemia [Recovered/Resolved]
  - Hypopituitarism [Recovered/Resolved]
